FAERS Safety Report 10075784 (Version 2)
Quarter: 2014Q2

REPORT INFORMATION
  Report Type: Spontaneous
  Country: DE (occurrence: DE)
  Receive Date: 20140414
  Receipt Date: 20140502
  Transmission Date: 20141212
  Serious: Yes (Other)
  Sender: FDA-Public Use
  Company Number: DE-ELI_LILLY_AND_COMPANY-DE201404003619

PATIENT
  Sex: 0

DRUGS (2)
  1. HUMINSULIN NPH [Suspect]
     Indication: GESTATIONAL DIABETES
     Dosage: 12 U, EACH EVENING
     Route: 064
  2. FEMIBION [Concomitant]
     Route: 064

REACTIONS (2)
  - Foetal monitoring abnormal [Recovered/Resolved]
  - Foetal exposure during pregnancy [Recovered/Resolved]
